FAERS Safety Report 7177916-9 (Version None)
Quarter: 2010Q4

REPORT INFORMATION
  Report Type: 
  Country: None (occurrence: None)
  Receive Date: 20101220
  Receipt Date: 20101209
  Transmission Date: 20110411
  Serious: Yes (Other)
  Sender: FDA-Public Use
  Company Number: US-US-EMD SERONO, INC.-7004163

PATIENT
  Sex: Female

DRUGS (5)
  1. REBIF [Suspect]
     Indication: MULTIPLE SCLEROSIS
     Route: 058
     Dates: start: 20090709
  2. TYLENOL (CAPLET) [Concomitant]
     Indication: PREMEDICATION
  3. VITAMIN D [Concomitant]
  4. VITAMIN B6 [Concomitant]
  5. VITAMIN B-12 [Concomitant]

REACTIONS (5)
  - CHILLS [None]
  - EXOSTOSIS [None]
  - HEADACHE [None]
  - PYREXIA [None]
  - VISUAL IMPAIRMENT [None]
